FAERS Safety Report 15429991 (Version 1)
Quarter: 2018Q3

REPORT INFORMATION
  Report Type: Spontaneous
  Country: US (occurrence: US)
  Receive Date: 20180926
  Receipt Date: 20180926
  Transmission Date: 20181010
  Serious: No
  Sender: FDA-Public Use
  Company Number: US-APOTEX-2018AP008595

PATIENT
  Sex: Female

DRUGS (1)
  1. BENAZEPRIL HYDROCHLORIDE AND HYDROCHLOROTHIAZIDE TABLETS [Suspect]
     Active Substance: BENAZEPRIL HYDROCHLORIDE\HYDROCHLOROTHIAZIDE
     Indication: PRODUCT USED FOR UNKNOWN INDICATION
     Dosage: UNK
     Route: 065

REACTIONS (5)
  - Reaction to excipient [Unknown]
  - Nausea [Unknown]
  - Malaise [Unknown]
  - Ill-defined disorder [Unknown]
  - Dizziness [Unknown]
